FAERS Safety Report 22329799 (Version 1)
Quarter: 2023Q2

REPORT INFORMATION
  Report Type: Spontaneous
  Country: US (occurrence: None)
  Receive Date: 20230517
  Receipt Date: 20230517
  Transmission Date: 20230722
  Serious: No
  Sender: FDA-Public Use
  Company Number: US-ROCHE-3220289

PATIENT
  Sex: Female

DRUGS (1)
  1. ACTEMRA [Suspect]
     Active Substance: TOCILIZUMAB
     Indication: Systemic scleroderma
     Dosage: STRENGTH: 80MG/4ML?ACTEMRA SDV (VIAL)
     Route: 042
     Dates: start: 20220602

REACTIONS (8)
  - Off label use [Unknown]
  - Pruritus [Unknown]
  - Nasopharyngitis [Unknown]
  - Influenza like illness [Unknown]
  - Headache [Unknown]
  - Urinary tract infection [Unknown]
  - Fungal infection [Unknown]
  - Cough [Unknown]
